FAERS Safety Report 9147090 (Version 1)
Quarter: 2013Q1

REPORT INFORMATION
  Report Type: Spontaneous
  Country: US (occurrence: US)
  Receive Date: 20130307
  Receipt Date: 20130307
  Transmission Date: 20140127
  Serious: Yes (Hospitalization)
  Sender: FDA-Public Use
  Company Number: US-BAYER-2013-028301

PATIENT
  Age: 42 Year
  Sex: Female
  Weight: 56.69 kg

DRUGS (22)
  1. YASMIN [Suspect]
  2. YAZ [Suspect]
  3. GIANVI [Suspect]
  4. LEVOTHYROXINE [Concomitant]
     Dosage: 112 MCG DAILY
     Route: 048
  5. TOPAMAX [Concomitant]
     Dosage: 25 MG, BID
     Route: 048
  6. ZYRTEC [Concomitant]
     Dosage: 10 MG, DAILY
     Route: 048
  7. IMITREX [Concomitant]
     Indication: MIGRAINE
     Dosage: 6 MG, PRN
  8. IMITREX [Concomitant]
     Indication: MIGRAINE
     Dosage: 100 MG, PRN
  9. FIORICET [Concomitant]
     Indication: MIGRAINE
     Dosage: UNK UNK, PRN
     Route: 048
  10. XANAX [Concomitant]
     Indication: ANXIETY
     Dosage: 0.25 MG, PRN
  11. PHENERGAN [Concomitant]
     Indication: NAUSEA
     Dosage: 25 MG, PRN
  12. PHENERGAN [Concomitant]
     Indication: MIGRAINE
     Dosage: UNK, PRN
     Route: 048
  13. IBUPROFEN [Concomitant]
     Dosage: 800 MG, PRN
     Route: 048
  14. DIFLUCAN [Concomitant]
     Dosage: 150 MG, DAILY
     Route: 048
  15. VITAMIN B COMPLEX [Concomitant]
     Dosage: UNK DAILY
     Route: 048
  16. VITAMIN D3 [Concomitant]
     Dosage: 2000 IU
     Route: 048
  17. POTASSIUM CHLORIDE [Concomitant]
     Dosage: 1/4 TSP
     Route: 048
  18. ZINC [Concomitant]
     Dosage: 50 MG, UNK
  19. CLARAVIS [Concomitant]
     Dosage: 20 MG, DAILY
     Route: 048
  20. PROBIOTICS [Concomitant]
     Dosage: UNK DAILY
     Route: 048
  21. FIORINAL [ACETYLSALICYLIC ACID,BUTALBITAL,CAFFEINE,PHENACETIN] [Concomitant]
     Indication: MIGRAINE
  22. SUMATRIPTAN [Concomitant]
     Indication: MIGRAINE

REACTIONS (2)
  - Pulmonary embolism [None]
  - Deep vein thrombosis [None]
